FAERS Safety Report 10650936 (Version 2)
Quarter: 2015Q1

REPORT INFORMATION
  Report Type: Report from Study
  Country: US (occurrence: US)
  Receive Date: 20141215
  Receipt Date: 20150102
  Transmission Date: 20150720
  Serious: Yes (Death, Other)
  Sender: FDA-Public Use
  Company Number: US-AMGEN-USASL2014096330

PATIENT
  Age: 67 Year
  Sex: Male

DRUGS (19)
  1. XGEVA [Suspect]
     Active Substance: DENOSUMAB
     Dosage: 120 MG, QMO
     Route: 030
  2. XGEVA [Suspect]
     Active Substance: DENOSUMAB
     Dosage: 120 MG, QMO
     Route: 030
  3. XGEVA [Suspect]
     Active Substance: DENOSUMAB
     Dosage: 120 MG, QMO
     Route: 030
  4. XGEVA [Suspect]
     Active Substance: DENOSUMAB
     Indication: METASTASES TO BONE
     Dosage: 120 MG, QMO
     Route: 030
     Dates: start: 20120312
  5. CASODEX [Concomitant]
     Active Substance: BICALUTAMIDE
     Indication: PROSTATE CANCER
     Dosage: 50 MG, UNK
     Route: 048
     Dates: start: 20130522
  6. ZYTIGA [Concomitant]
     Active Substance: ABIRATERONE ACETATE
     Dosage: UNK
  7. XGEVA [Suspect]
     Active Substance: DENOSUMAB
     Dosage: 120 MG, QMO
     Route: 030
  8. XGEVA [Suspect]
     Active Substance: DENOSUMAB
     Dosage: 120 MG, QMO
     Route: 030
  9. XGEVA [Suspect]
     Active Substance: DENOSUMAB
     Dosage: 120 MG, QMO
     Route: 030
  10. XGEVA [Suspect]
     Active Substance: DENOSUMAB
     Dosage: 120 MG, QMO
     Route: 058
  11. XGEVA [Suspect]
     Active Substance: DENOSUMAB
     Dosage: 120 MG, QMO
     Route: 030
  12. XGEVA [Suspect]
     Active Substance: DENOSUMAB
     Dosage: 120 MG, QMO
     Route: 030
  13. XGEVA [Suspect]
     Active Substance: DENOSUMAB
     Dosage: 120 MG, QMO
     Route: 030
  14. FLOMAX [Concomitant]
     Active Substance: TAMSULOSIN HYDROCHLORIDE
     Dosage: UNK
     Route: 048
  15. PROSTEON [Concomitant]
     Active Substance: MINERALS
     Dosage: UNK
  16. RADIUM RA 223 DICHLORIDE [Concomitant]
     Active Substance: RADIUM RA-223 DICHLORIDE
     Indication: METASTASES TO BONE
     Dosage: UNK
  17. MS CONTIN [Concomitant]
     Active Substance: MORPHINE SULFATE
     Indication: PAIN
     Dosage: UNK
  18. XGEVA [Suspect]
     Active Substance: DENOSUMAB
     Dosage: 120 MG, QMO
     Route: 030
  19. PREDNISONE. [Concomitant]
     Active Substance: PREDNISONE
     Dosage: 5 MG, BID
     Route: 048

REACTIONS (36)
  - Joint range of motion decreased [Not Recovered/Not Resolved]
  - Peripheral swelling [Unknown]
  - Urinary incontinence [Unknown]
  - Muscle spasms [Unknown]
  - Fatigue [Not Recovered/Not Resolved]
  - Nocturia [Not Recovered/Not Resolved]
  - Ageusia [Unknown]
  - Dysuria [Not Recovered/Not Resolved]
  - Bladder spasm [Unknown]
  - Localised infection [Unknown]
  - Pain [Recovering/Resolving]
  - Sleep disorder [Unknown]
  - Herpes zoster [Unknown]
  - Blood pressure abnormal [Recovered/Resolved]
  - Arthralgia [Unknown]
  - Weight decreased [Not Recovered/Not Resolved]
  - Joint swelling [Unknown]
  - Bladder dilatation [Unknown]
  - Pollakiuria [Unknown]
  - Oedema peripheral [Unknown]
  - Death [Fatal]
  - Muscular weakness [Unknown]
  - Alopecia [Unknown]
  - Pain in extremity [Unknown]
  - Metastases to bone [Unknown]
  - Atelectasis [Unknown]
  - Walking aid user [Recovered/Resolved]
  - Metastases to abdominal cavity [Recovering/Resolving]
  - Metastases to central nervous system [Unknown]
  - Decreased appetite [Recovering/Resolving]
  - Metastases to liver [Unknown]
  - Pain in jaw [Unknown]
  - Joint injury [Recovered/Resolved]
  - Haemoglobin abnormal [Unknown]
  - Constipation [Not Recovered/Not Resolved]
  - Dyspnoea [Recovered/Resolved]

NARRATIVE: CASE EVENT DATE: 20121212
